FAERS Safety Report 7904342-4 (Version None)
Quarter: 2011Q4

REPORT INFORMATION
  Report Type: 
  Country: None (occurrence: None)
  Receive Date: 20111109
  Receipt Date: 20111031
  Transmission Date: 20120403
  Serious: Yes (Hospitalization)
  Sender: FDA-Public Use
  Company Number: JP-PFIZER INC-2011254256

PATIENT
  Age: 74 Year
  Sex: Male

DRUGS (23)
  1. CYMERIN [Suspect]
     Indication: ADULT T-CELL LYMPHOMA/LEUKAEMIA
     Dosage: 60 MG/M2, UNK
     Route: 041
     Dates: start: 20110907, end: 20110907
  2. ISONIAZID [Concomitant]
     Indication: ANTIBIOTIC PROPHYLAXIS
     Dosage: 300 MG, 1X/DAY
     Route: 048
     Dates: start: 20110831
  3. DOXORUBICIN HYDROCHLORIDE [Suspect]
     Dosage: 30 MG/M2, UNK
     Route: 041
     Dates: start: 20110907, end: 20110907
  4. ALLOPURINOL [Concomitant]
     Indication: TUMOUR LYSIS SYNDROME
     Dosage: 100 MG, 3X/DAY
     Route: 048
     Dates: start: 20110831
  5. PROTECADIN [Concomitant]
     Indication: GASTRITIS
     Dosage: 10 MG, 2X/DAY
     Route: 048
     Dates: start: 20110831
  6. DOXORUBICIN HYDROCHLORIDE [Suspect]
     Indication: ADULT T-CELL LYMPHOMA/LEUKAEMIA
     Dosage: 40 MG/M2, UNK
     Route: 041
     Dates: start: 20110831, end: 20110831
  7. FILDESIN [Suspect]
     Indication: ADULT T-CELL LYMPHOMA/LEUKAEMIA
     Dosage: 2.4 MG/M2, UNK
     Dates: start: 20110917, end: 20110917
  8. LAXOBERON [Concomitant]
     Indication: CONSTIPATION
     Dosage: UNK
     Route: 048
     Dates: start: 20111012
  9. LYRICA [Suspect]
     Indication: TRIGEMINAL NEURALGIA
     Dosage: 150 MG, 2X/DAY
     Route: 048
     Dates: start: 20110823
  10. ONCOVIN [Suspect]
     Indication: ADULT T-CELL LYMPHOMA/LEUKAEMIA
     Dosage: 1 MG/M2, UNK
     Dates: start: 20110831, end: 20111007
  11. CARBOPLATIN [Suspect]
     Indication: ADULT T-CELL LYMPHOMA/LEUKAEMIA
     Dosage: 250 MG/M2, UNK
     Route: 041
     Dates: start: 20110917, end: 20110917
  12. ITRACONAZOLE [Concomitant]
     Indication: OESOPHAGEAL CANDIDIASIS
     Dosage: 20 ML, 1X/DAY
     Route: 048
     Dates: start: 20110829
  13. CYTARABINE [Concomitant]
     Indication: ADULT T-CELL LYMPHOMA/LEUKAEMIA
     Dosage: 40 MG/M2, UNK
     Route: 037
     Dates: start: 20111006, end: 20111006
  14. BAKTAR [Concomitant]
     Indication: PNEUMOCYSTIS JIROVECI PNEUMONIA
     Dosage: 1 G, 1X/DAY
     Route: 048
     Dates: start: 20110831
  15. DIOVAN [Concomitant]
     Indication: HYPERTENSION
     Dosage: 80 MG, 1X/DAY
     Route: 048
     Dates: start: 20110911
  16. CYCLOPHOSPHAMIDE [Suspect]
     Indication: ADULT T-CELL LYMPHOMA/LEUKAEMIA
     Dosage: 350 MG/M2, UNK
     Route: 041
     Dates: start: 20110831, end: 20111007
  17. NEUQUINON [Concomitant]
     Indication: TRICUSPID VALVE INCOMPETENCE
     Dosage: 10 MG, 3X/DAY
     Route: 048
     Dates: start: 20110831
  18. ETOPOSIDE [Suspect]
     Indication: ADULT T-CELL LYMPHOMA/LEUKAEMIA
     Dosage: 100 MG/M2, UNK
     Route: 041
     Dates: start: 20110917, end: 20110919
  19. SENNOSIDE [Concomitant]
     Indication: CONSTIPATION
     Dosage: 24 MG, 1X/DAY
     Route: 048
     Dates: start: 20110911
  20. DOXORUBICIN HYDROCHLORIDE [Suspect]
     Dosage: 40 MG/M2, UNK
     Route: 041
     Dates: start: 20111007, end: 20111007
  21. METHOTREXATE SODIUM [Suspect]
     Indication: ADULT T-CELL LYMPHOMA/LEUKAEMIA
     Dosage: 15 MG/M2, UNK
     Route: 037
     Dates: start: 20111006, end: 20111006
  22. MAGMITT [Concomitant]
     Indication: CONSTIPATION
     Dosage: 690 MG, 3X/DAY
     Route: 048
     Dates: start: 20110925
  23. AMARYL [Concomitant]
     Indication: DIABETES MELLITUS
     Dosage: 1 MG, 1X/DAY
     Route: 048
     Dates: start: 20110901

REACTIONS (1)
  - COLITIS ISCHAEMIC [None]
